FAERS Safety Report 6176600-8 (Version None)
Quarter: 2009Q2

REPORT INFORMATION
  Report Type: 
  Country: None (occurrence: None)
  Receive Date: 20090501
  Receipt Date: 20081014
  Transmission Date: 20091009
  Serious: Yes (Death, Life-Threatening)
  Sender: FDA-Public Use
  Company Number: GB-ALEXION-A200800264

PATIENT

DRUGS (8)
  1. SOLIRIS [Suspect]
     Indication: ANAEMIA HAEMOLYTIC AUTOIMMUNE
     Dosage: 900 MG, SINGLE
     Route: 042
     Dates: start: 20081003, end: 20081003
  2. SOLIRIS [Suspect]
     Indication: OFF LABEL USE
  3. PENICILLIN /00000901/ [Concomitant]
  4. SEPTRIN [Concomitant]
  5. CIPROFLOXACIN [Concomitant]
  6. FOLIC ACID [Concomitant]
  7. PREDNISOLONE [Concomitant]
     Dates: start: 20070101
  8. IMMUNOGLOBULINS NOS [Concomitant]
     Dosage: UNK, UNK
     Route: 042

REACTIONS (4)
  - ACUTE HEPATIC FAILURE [None]
  - CARDIOMEGALY [None]
  - COAGULOPATHY [None]
  - PULMONARY HAEMORRHAGE [None]
